FAERS Safety Report 8830865 (Version 2)
Quarter: 2012Q4

REPORT INFORMATION
  Report Type: 
  Country: US (occurrence: US)
  Receive Date: 20121009
  Receipt Date: 20121129
  Transmission Date: 20130627
  Serious: No
  Sender: FDA-Public Use
  Company Number: US-PFIZER INC-2012245979

PATIENT
  Age: 79 Year
  Sex: Male

DRUGS (1)
  1. INLYTA [Suspect]
     Indication: MALIGNANT NEOPLASM OF KIDNEY, EXCEPT PELVIS
     Dosage: 5 mg, 2x/day
     Route: 048
     Dates: start: 20120523

REACTIONS (5)
  - Dysphonia [Unknown]
  - Cough [Unknown]
  - Dry mouth [Unknown]
  - Increased upper airway secretion [Unknown]
  - Aphonia [Unknown]
